FAERS Safety Report 4408650-3 (Version None)
Quarter: 2004Q3

REPORT INFORMATION
  Report Type: 
  Country: None (occurrence: None)
  Receive Date: 20040723
  Receipt Date: 20040713
  Transmission Date: 20050211
  Serious: Yes (Other)
  Sender: FDA-Public Use
  Company Number: 200410556BCA

PATIENT
  Age: 84 Year
  Sex: Male

DRUGS (5)
  1. CIPROFLOXACIN [Suspect]
     Dosage: 500 MG, QD, ORAL
     Route: 048
  2. PROSCAR [Suspect]
     Dosage: 5 MG, QD, ORAL
     Route: 048
  3. SINEMET CR [Suspect]
     Dosage: 1 DF, TID, ORAL     A FEW YEARS
     Route: 048
  4. COGENTIN [Concomitant]
  5. PRODIEM [Concomitant]

REACTIONS (9)
  - ANAEMIA [None]
  - BLOOD CREATININE INCREASED [None]
  - BLOOD LACTATE DEHYDROGENASE INCREASED [None]
  - COAGULOPATHY [None]
  - HAEMATURIA [None]
  - HYPERBILIRUBINAEMIA [None]
  - PURPURA [None]
  - TACHYCARDIA [None]
  - THROMBOCYTOPENIA [None]
